FAERS Safety Report 26111815 (Version 1)
Quarter: 2025Q4

REPORT INFORMATION
  Report Type: Spontaneous
  Country: EU (occurrence: EU)
  Receive Date: 20251202
  Receipt Date: 20251202
  Transmission Date: 20260118
  Serious: Yes (Death, Other)
  Sender: ANI
  Company Number: None

PATIENT
  Age: 25 Year
  Sex: Male
  Weight: 86 kg

DRUGS (7)
  1. ANASTROZOLE [Suspect]
     Active Substance: ANASTROZOLE
     Indication: Product used for unknown indication
     Route: 048
     Dates: start: 20250127, end: 20250601
  2. TESTOSTERONE ENANTHATE [Concomitant]
     Active Substance: TESTOSTERONE ENANTHATE
     Indication: Product used for unknown indication
     Dosage: 125 MG
     Route: 030
     Dates: start: 20240805, end: 20250601
  3. METHENOLONE [Concomitant]
     Active Substance: METHENOLONE
     Indication: Product used for unknown indication
     Dosage: 100 MG
     Route: 030
     Dates: start: 20240805, end: 20241215
  4. NANDROLONE [Concomitant]
     Active Substance: NANDROLONE
     Indication: Product used for unknown indication
     Dosage: 50 MG
     Route: 030
     Dates: start: 20250127, end: 20250601
  5. DROMOSTANOLONE [Concomitant]
     Active Substance: DROMOSTANOLONE
     Indication: Product used for unknown indication
     Dosage: 100 MG
     Route: 030
     Dates: start: 20250127, end: 20250601
  6. TESTOSTERONE ENANTHATE [Concomitant]
     Active Substance: TESTOSTERONE ENANTHATE
     Indication: Product used for unknown indication
     Dosage: 30 MG 0.1 ML, MO, TU, WE, FR, SA
     Route: 030
     Dates: start: 20250602, end: 20250615
  7. DROMOSTANOLONE [Concomitant]
     Active Substance: DROMOSTANOLONE
     Indication: Product used for unknown indication
     Dosage: 20 MG
     Route: 030
     Dates: start: 20250602, end: 20250615

REACTIONS (2)
  - Bile duct adenocarcinoma [Fatal]
  - Product use issue [Unknown]

NARRATIVE: CASE EVENT DATE: 20250624
